FAERS Safety Report 13470150 (Version 1)
Quarter: 2017Q2

REPORT INFORMATION
  Report Type: Spontaneous
  Country: US (occurrence: US)
  Receive Date: 20170423
  Receipt Date: 20170423
  Transmission Date: 20170830
  Serious: No
  Sender: FDA-Public Use
  Company Number: US-BIOGEN-2017BI00389231

PATIENT
  Age: 44 Year
  Sex: Female

DRUGS (1)
  1. ZINBRYTA [Suspect]
     Active Substance: DACLIZUMAB
     Indication: RELAPSING-REMITTING MULTIPLE SCLEROSIS
     Route: 065
     Dates: start: 20170310

REACTIONS (7)
  - Anger [Not Recovered/Not Resolved]
  - Aggression [Recovered/Resolved with Sequelae]
  - Arthralgia [Unknown]
  - Irritability [Not Recovered/Not Resolved]
  - Depression [Recovered/Resolved with Sequelae]
  - Multiple sclerosis relapse [Unknown]
  - Musculoskeletal stiffness [Unknown]

NARRATIVE: CASE EVENT DATE: 201703
